FAERS Safety Report 19014358 (Version 1)
Quarter: 2021Q1

REPORT INFORMATION
  Report Type: Spontaneous
  Country: US (occurrence: US)
  Receive Date: 20210316
  Receipt Date: 20210316
  Transmission Date: 20210420
  Serious: No
  Sender: FDA-Public Use
  Company Number: US-BAYER-2021-105487

PATIENT
  Sex: Female

DRUGS (3)
  1. BERBERINE [Concomitant]
     Active Substance: BERBERINE
  2. TRAMADOL. [Concomitant]
     Active Substance: TRAMADOL
  3. MIRALAX [Suspect]
     Active Substance: POLYETHYLENE GLYCOL 3350
     Indication: GASTROINTESTINAL DISORDER
     Dosage: 7 1/2 CAPS OF MIRALAX IN EACH (2) 32OZ BOTTLE OF GATORADE
     Route: 048

REACTIONS (1)
  - Drug ineffective [Unknown]
